FAERS Safety Report 13284318 (Version 3)
Quarter: 2017Q3

REPORT INFORMATION
  Report Type: Report from Study
  Country: IL (occurrence: IL)
  Receive Date: 20170301
  Receipt Date: 20170913
  Transmission Date: 20171127
  Serious: Yes (Other)
  Sender: FDA-Public Use
  Company Number: IL-BAYER-2017-035962

PATIENT
  Age: 38 Year
  Sex: Female

DRUGS (1)
  1. MIRENA [Suspect]
     Active Substance: LEVONORGESTREL
     Dosage: 20 MCG/24HR, CONT
     Route: 015
     Dates: start: 2012, end: 201701

REACTIONS (12)
  - Vulval laceration [None]
  - Coital bleeding [None]
  - Meningioma [Recovered/Resolved]
  - Ovarian cyst [None]
  - Actinomycosis [None]
  - Inflammation [None]
  - Mycoplasma infection [None]
  - Vulvovaginal mycotic infection [None]
  - Pelvic pain [Not Recovered/Not Resolved]
  - Bacterial vaginosis [None]
  - Vaginal discharge [Not Recovered/Not Resolved]
  - Ureaplasma infection [None]

NARRATIVE: CASE EVENT DATE: 2015
